FAERS Safety Report 6409910-7 (Version None)
Quarter: 2009Q4

REPORT INFORMATION
  Report Type: 
  Country: None (occurrence: None)
  Receive Date: 20091022
  Receipt Date: 20091016
  Transmission Date: 20100525
  Serious: Yes (Hospitalization)
  Sender: FDA-Public Use
  Company Number: US-WYE-H11624209

PATIENT
  Sex: Male
  Weight: 81.72 kg

DRUGS (2)
  1. ADVIL [Suspect]
     Dosage: UNKNOWN
     Route: 048
  2. SALBUTAMOL SULFATE [Suspect]
     Dosage: 2 PUFFS AS NEEDED (90 MCG)
     Route: 055
     Dates: start: 20091006

REACTIONS (3)
  - CHEST DISCOMFORT [None]
  - DYSPNOEA [None]
  - FEELING ABNORMAL [None]
